FAERS Safety Report 5260287-2 (Version None)
Quarter: 2007Q1

REPORT INFORMATION
  Report Type: 
  Country: None (occurrence: None)
  Receive Date: 20070309
  Receipt Date: 20060621
  Transmission Date: 20070707
  Serious: No
  Sender: FDA-Public Use
  Company Number: US-GLAXOSMITHKLINE-A0609665A

PATIENT
  Age: 41 Year
  Sex: Female

DRUGS (1)
  1. NICORETTE [Suspect]
     Dates: start: 20060619, end: 20060619

REACTIONS (3)
  - ANXIETY [None]
  - DYSPNOEA [None]
  - THROAT TIGHTNESS [None]
